FAERS Safety Report 24024720 (Version 1)
Quarter: 2024Q2

REPORT INFORMATION
  Report Type: Spontaneous
  Country: US (occurrence: US)
  Receive Date: 20240628
  Receipt Date: 20240628
  Transmission Date: 20240715
  Serious: Yes (Other)
  Sender: FDA-Public Use
  Company Number: US-STRIDES ARCOLAB LIMITED-2024SP007515

PATIENT

DRUGS (3)
  1. PREDNISOLONE [Suspect]
     Active Substance: PREDNISOLONE
     Indication: Bronchopulmonary aspergillosis allergic
     Dosage: UNK
     Route: 048
  2. PREDNISOLONE [Suspect]
     Active Substance: PREDNISOLONE
     Dosage: 10 MILLIGRAM, QD (DOSE REDUCED)
     Route: 048
  3. PREDNISOLONE [Suspect]
     Active Substance: PREDNISOLONE
     Dosage: 1 MILLIGRAM, ONCE A MONTH (PER MONTH)
     Route: 048

REACTIONS (3)
  - Adrenal insufficiency [Recovered/Resolved]
  - Cushing^s syndrome [Recovered/Resolved]
  - Osteoporosis [Recovered/Resolved]
